FAERS Safety Report 9628834 (Version 1)
Quarter: 2013Q4

REPORT INFORMATION
  Report Type: Spontaneous
  Country: US (occurrence: US)
  Receive Date: 20131017
  Receipt Date: 20131017
  Transmission Date: 20140711
  Serious: Yes (Other)
  Sender: FDA-Public Use
  Company Number: US-GLAXOSMITHKLINE-A1011249A

PATIENT
  Age: 3 Year
  Sex: Female

DRUGS (1)
  1. CEFTIN [Suspect]
     Indication: EAR INFECTION
     Dosage: 2.5ML TWICE PER DAY
     Route: 048
     Dates: start: 20130124, end: 20130203

REACTIONS (2)
  - Drug ineffective [Recovering/Resolving]
  - Product quality issue [Unknown]
